FAERS Safety Report 6752123-X (Version None)
Quarter: 2010Q2

REPORT INFORMATION
  Report Type: 
  Country: None (occurrence: None)
  Receive Date: 20100602
  Receipt Date: 20100525
  Transmission Date: 20101027
  Serious: Yes (Hospitalization)
  Sender: FDA-Public Use
  Company Number: JP-SHIRE-SPV1-2010-01020

PATIENT

DRUGS (20)
  1. LANTHANUM CARBONATE [Suspect]
     Indication: HYPERPHOSPHATAEMIA
     Dosage: 750 MG, UNK
     Route: 048
     Dates: start: 20090413
  2. RENAGEL [Concomitant]
     Indication: HYPERPHOSPHATAEMIA
     Dosage: 300 MG, UNK
     Route: 048
     Dates: end: 20090814
  3. OXAROL [Concomitant]
     Dosage: 10 UG, UNK
     Route: 042
     Dates: end: 20090630
  4. OXAROL [Concomitant]
     Dosage: 5 UG, UNK
     Route: 042
     Dates: start: 20090701, end: 20090831
  5. OXAROL [Concomitant]
     Dosage: 10 UG, UNK
     Route: 042
     Dates: start: 20090901, end: 20090930
  6. OXAROL [Concomitant]
     Dosage: 10 UG, UNK
     Route: 042
     Dates: start: 20091001, end: 20091130
  7. OXAROL [Concomitant]
     Dosage: 10 UG, UNK
     Route: 042
     Dates: start: 20091201, end: 20100131
  8. OXAROL [Concomitant]
     Dosage: 10 UG, UNK
     Route: 042
     Dates: start: 20100201
  9. CINACALCET HYDROCHLORIDE [Concomitant]
     Indication: HYPERPARATHYROIDISM SECONDARY
     Dosage: 50 MG, UNK
     Route: 048
     Dates: end: 20090601
  10. CINACALCET HYDROCHLORIDE [Concomitant]
     Dosage: 25 MG, UNK
     Route: 048
     Dates: start: 20090703
  11. SIGMART [Concomitant]
     Dosage: 15 MG, UNK
     Route: 048
  12. NITOROL [Concomitant]
     Dosage: 40 MG, UNK
     Route: 048
  13. PURSENNID                          /00142207/ [Concomitant]
     Dosage: 24 MG, UNK
     Route: 048
  14. LENDORMIN [Concomitant]
     Dosage: .125 UNK, UNK
     Route: 048
  15. VASOMET [Concomitant]
     Dosage: 1 DF, UNK
     Route: 048
  16. RISUMIC [Concomitant]
     Route: 048
  17. ACETYLSALICYLIC ACID [Concomitant]
     Dosage: 100 MG, UNK
     Route: 048
  18. NU-LOTAN [Concomitant]
     Dosage: 50 MG, UNK
     Route: 048
  19. NOVOLIN 30R                        /00030505/ [Concomitant]
     Dosage: 4 IU, UNK
     Route: 058
  20. NESP [Concomitant]
     Dosage: 20 MG, UNK
     Route: 042

REACTIONS (2)
  - CARPAL TUNNEL SYNDROME [None]
  - NAUSEA [None]
